FAERS Safety Report 24804924 (Version 2)
Quarter: 2025Q1

REPORT INFORMATION
  Report Type: Spontaneous
  Country: TW (occurrence: TW)
  Receive Date: 20250103
  Receipt Date: 20250109
  Transmission Date: 20250409
  Serious: Yes (Life-Threatening, Hospitalization, Other)
  Sender: PFIZER
  Company Number: TW-PFIZER INC-PV202400168718

PATIENT
  Age: 68 Year
  Sex: Male

DRUGS (12)
  1. RITUXIMAB [Suspect]
     Active Substance: RITUXIMAB
     Indication: Follicular lymphoma stage III
     Dates: start: 20210625, end: 20210626
  2. RITUXIMAB [Suspect]
     Active Substance: RITUXIMAB
     Dates: start: 20210722, end: 20210723
  3. RITUXIMAB [Suspect]
     Active Substance: RITUXIMAB
     Dates: start: 20210813, end: 20210814
  4. VINCRISTINE SULFATE [Suspect]
     Active Substance: VINCRISTINE SULFATE
     Indication: Follicular lymphoma stage III
     Dates: start: 20210625, end: 20210626
  5. VINCRISTINE SULFATE [Suspect]
     Active Substance: VINCRISTINE SULFATE
     Dates: start: 20210722, end: 20210723
  6. VINCRISTINE SULFATE [Suspect]
     Active Substance: VINCRISTINE SULFATE
     Dates: start: 20210813, end: 20210814
  7. CYCLOPHOSPHAMIDE [Suspect]
     Active Substance: CYCLOPHOSPHAMIDE
     Indication: Follicular lymphoma stage III
     Dates: start: 20210625, end: 20210626
  8. CYCLOPHOSPHAMIDE [Suspect]
     Active Substance: CYCLOPHOSPHAMIDE
     Dates: start: 20210722, end: 20210723
  9. CYCLOPHOSPHAMIDE [Suspect]
     Active Substance: CYCLOPHOSPHAMIDE
     Dates: start: 20210813, end: 20210814
  10. PREDNISONE [Suspect]
     Active Substance: PREDNISONE
     Indication: Follicular lymphoma stage III
     Dates: start: 20210625, end: 20210626
  11. PREDNISONE [Suspect]
     Active Substance: PREDNISONE
     Dates: start: 20210722, end: 20210723
  12. PREDNISONE [Suspect]
     Active Substance: PREDNISONE
     Dates: start: 20210813, end: 20210814

REACTIONS (2)
  - Pneumocystis jirovecii pneumonia [Recovered/Resolved]
  - Cytomegalovirus infection [Recovered/Resolved]
